FAERS Safety Report 8807484 (Version 1)
Quarter: 2012Q4

REPORT INFORMATION
  Report Type: 
  Country: US (occurrence: US)
  Receive Date: 20120925
  Receipt Date: 20120925
  Transmission Date: 20130627
  Serious: No
  Sender: FDA-Public Use
  Company Number: US-PFIZER INC-2012237066

PATIENT
  Age: 74 Year
  Sex: Male

DRUGS (3)
  1. LYRICA [Suspect]
     Indication: NEUROPATHY PERIPHERAL
     Dosage: 50 mg, 2x/day
     Dates: start: 201208, end: 201209
  2. TEGRETOL [Concomitant]
     Indication: NEUROPATHY PERIPHERAL
     Dosage: 200 mg, 3x/day
     Dates: start: 2011
  3. LIPITOR [Concomitant]
     Dosage: UNK

REACTIONS (1)
  - Blood potassium abnormal [Unknown]
